FAERS Safety Report 12710709 (Version 1)
Quarter: 2016Q3

REPORT INFORMATION
  Report Type: Spontaneous
  Country: JP (occurrence: JP)
  Receive Date: 20160902
  Receipt Date: 20160902
  Transmission Date: 20161109
  Serious: No
  Sender: FDA-Public Use
  Company Number: JP-LUPIN PHARMACEUTICALS INC.-2015-04094

PATIENT
  Age: 73 Year
  Sex: Male

DRUGS (1)
  1. AMLODIPINE BESYLATE 2.5MG/5MG [Suspect]
     Active Substance: AMLODIPINE BESYLATE
     Indication: HYPERTENSION
     Dosage: MORNING 5 MG AND EVENING 2.5 MG
     Route: 048
     Dates: end: 20151125

REACTIONS (1)
  - Loose tooth [Unknown]

NARRATIVE: CASE EVENT DATE: 20151125
